FAERS Safety Report 7808742-2 (Version None)
Quarter: 2011Q4

REPORT INFORMATION
  Report Type: 
  Country: None (occurrence: None)
  Receive Date: 20111012
  Receipt Date: 20111010
  Transmission Date: 20120403
  Serious: Yes (Death)
  Sender: FDA-Public Use
  Company Number: NO-TEVA-304225ISR

PATIENT
  Age: 49 Year
  Sex: Male

DRUGS (10)
  1. PREDNISOLONE [Suspect]
     Indication: HODGKIN'S DISEASE
     Route: 048
  2. ETOPOSIDE [Suspect]
     Indication: HODGKIN'S DISEASE
     Route: 042
  3. ETOPOSIDE [Suspect]
     Route: 042
  4. PROCARBAZINE HYDROCHLORIDE [Suspect]
     Indication: HODGKIN'S DISEASE
     Route: 048
  5. DOXORUBICIN HCL [Suspect]
     Route: 042
  6. VINCRISTINE [Suspect]
     Indication: HODGKIN'S DISEASE
     Route: 042
  7. CYCLOSPORINE [Suspect]
     Route: 042
  8. DOXORUBICIN HCL [Suspect]
     Indication: HODGKIN'S DISEASE
     Route: 042
  9. BLEOMYCIN SULFATE [Suspect]
     Indication: HODGKIN'S DISEASE
     Route: 042
  10. CYCLOSPORINE [Suspect]
     Indication: HODGKIN'S DISEASE
     Route: 042

REACTIONS (5)
  - PNEUMOCYSTIS JIROVECI PNEUMONIA [None]
  - LUNG INFILTRATION [None]
  - BONE MARROW FAILURE [None]
  - PYREXIA [None]
  - SEPTIC SHOCK [None]
